FAERS Safety Report 5204224-5 (Version None)
Quarter: 2007Q1

REPORT INFORMATION
  Report Type: 
  Country: None (occurrence: None)
  Receive Date: 20070110
  Receipt Date: 20060113
  Transmission Date: 20070707
  Serious: No
  Sender: FDA-Public Use
  Company Number: US-BRISTOL-MYERS SQUIBB COMPANY-13247804

PATIENT
  Age: 31 Year
  Sex: Female

DRUGS (9)
  1. ABILIFY [Suspect]
     Indication: DISSOCIATIVE IDENTITY DISORDER
     Route: 048
     Dates: start: 20050216
  2. ABILIFY [Suspect]
     Indication: BIPOLAR DISORDER
     Route: 048
     Dates: start: 20050216
  3. BUSPAR [Concomitant]
  4. TRAZODONE HCL [Concomitant]
  5. ORTHO-NOVUM 1/50 21 [Concomitant]
  6. ANTIBIOTIC [Concomitant]
     Indication: RESPIRATORY TRACT INFECTION
  7. KLONOPIN [Concomitant]
  8. TRILEPTAL [Concomitant]
  9. PROVIGIL [Concomitant]

REACTIONS (4)
  - AGITATION [None]
  - PREGNANCY [None]
  - SELF INJURIOUS BEHAVIOUR [None]
  - SUICIDAL IDEATION [None]
